FAERS Safety Report 7383257-7 (Version None)
Quarter: 2011Q1

REPORT INFORMATION
  Report Type: 
  Country: None (occurrence: None)
  Receive Date: 20110324
  Receipt Date: 20110324
  Transmission Date: 20110831
  Serious: No
  Sender: FDA-Public Use
  Company Number: None

PATIENT
  Sex: Female

DRUGS (1)
  1. FOSAMAX [Suspect]
     Dosage: 70MG ONCE PO WKLY
     Route: 048
     Dates: start: 20070213, end: 20070226

REACTIONS (1)
  - NAUSEA [None]
